FAERS Safety Report 8216071-0 (Version None)
Quarter: 2012Q1

REPORT INFORMATION
  Report Type: 
  Country: None (occurrence: None)
  Receive Date: 20120316
  Receipt Date: 20120313
  Transmission Date: 20120608
  Serious: Yes (Hospitalization, Other)
  Sender: FDA-Public Use
  Company Number: US-BAYER-2012-003235

PATIENT
  Age: 77 Year
  Sex: Female
  Weight: 59.42 kg

DRUGS (2)
  1. SODIUM CHLORIDE [Concomitant]
  2. NEXAVAR [Suspect]
     Indication: HEPATIC NEOPLASM MALIGNANT
     Dosage: 400 MG, BID
     Route: 048
     Dates: start: 20120107, end: 20120301

REACTIONS (19)
  - NIPPLE PAIN [None]
  - PAIN [None]
  - HYPOKALAEMIA [None]
  - EATING DISORDER [None]
  - PROTEIN TOTAL DECREASED [None]
  - NAUSEA [None]
  - VOMITING [None]
  - CONSTIPATION [None]
  - BACK PAIN [None]
  - RASH [None]
  - PAIN IN EXTREMITY [None]
  - ABDOMINAL DISTENSION [None]
  - HAEMOPTYSIS [None]
  - INSOMNIA [None]
  - FALL [None]
  - BREAST PAIN [None]
  - MALAISE [None]
  - OEDEMA PERIPHERAL [None]
  - BLOOD SODIUM DECREASED [None]
